FAERS Safety Report 4733765-X (Version None)
Quarter: 2005Q3

REPORT INFORMATION
  Report Type: 
  Country: None (occurrence: None)
  Receive Date: 20050721
  Receipt Date: 20050512
  Transmission Date: 20060218
  Serious: No
  Sender: FDA-Public Use
  Company Number: 2005SP000745

PATIENT
  Age: 76 Year
  Sex: Male
  Weight: 86.1834 kg

DRUGS (5)
  1. LUNESTA [Suspect]
     Dosage: 1 MG;HS
     Dates: start: 20050511
  2. GLYBURIDE [Concomitant]
  3. COREG [Concomitant]
  4. HYTRIN [Concomitant]
  5. TRAZODONE [Concomitant]

REACTIONS (2)
  - DRUG INEFFECTIVE [None]
  - INSOMNIA [None]
